FAERS Safety Report 10433664 (Version 3)
Quarter: 2015Q2

REPORT INFORMATION
  Report Type: Report from Study
  Country: DE (occurrence: DE)
  Receive Date: 20140905
  Receipt Date: 20150414
  Transmission Date: 20150821
  Serious: Yes (Life-Threatening, Hospitalization, Other)
  Sender: FDA-Public Use
  Company Number: PHHY2014DE111500

PATIENT
  Age: 64 Year
  Sex: Female

DRUGS (4)
  1. CANEPHRON//HERBAL EXTRACT NOS [Concomitant]
     Indication: URINARY TRACT INFECTION
     Route: 065
  2. GILENYA [Suspect]
     Active Substance: FINGOLIMOD HYDROCHLORIDE
     Indication: RELAPSING-REMITTING MULTIPLE SCLEROSIS
     Dosage: 0.5 MG, QD
     Route: 048
     Dates: start: 20140717, end: 20140901
  3. METHIONINE [Concomitant]
     Active Substance: METHIONINE
     Indication: URINARY TRACT INFECTION
     Route: 065
  4. PANTOPRAZOLE [Concomitant]
     Active Substance: PANTOPRAZOLE SODIUM
     Indication: PRODUCT USED FOR UNKNOWN INDICATION
     Route: 065
     Dates: start: 2011

REACTIONS (8)
  - Syncope [Recovering/Resolving]
  - Leukocytosis [Recovering/Resolving]
  - Urosepsis [Recovering/Resolving]
  - Fatigue [Recovering/Resolving]
  - Blood creatine phosphokinase increased [Recovering/Resolving]
  - Pancreatitis [Recovering/Resolving]
  - Procalcitonin increased [Recovering/Resolving]
  - Hepatic enzyme increased [Recovering/Resolving]

NARRATIVE: CASE EVENT DATE: 20140829
